FAERS Safety Report 9088731 (Version 1)
Quarter: 2013Q1

REPORT INFORMATION
  Report Type: Report from Study
  Country: US (occurrence: US)
  Receive Date: 20130201
  Receipt Date: 20130201
  Transmission Date: 20140127
  Serious: No
  Sender: FDA-Public Use
  Company Number: US-ABBOTT-12P-163-1024126-00

PATIENT
  Age: 44 Year
  Sex: Male

DRUGS (3)
  1. HUMIRA [Suspect]
     Indication: CROHN^S DISEASE
     Dates: start: 201203
  2. AZATHIOPRINE [Concomitant]
     Indication: CROHN^S DISEASE
     Dosage: 100MG DAILY
     Route: 048
  3. CANASA [Concomitant]
     Indication: CROHN^S DISEASE
     Dosage: DAILY
     Route: 048

REACTIONS (2)
  - Device malfunction [Recovered/Resolved]
  - Injection site haemorrhage [Recovered/Resolved]
